FAERS Safety Report 16833329 (Version 1)
Quarter: 2019Q3

REPORT INFORMATION
  Report Type: Spontaneous
  Country: US (occurrence: US)
  Receive Date: 20190920
  Receipt Date: 20190920
  Transmission Date: 20191005
  Serious: Yes (Hospitalization, Other)
  Sender: FDA-Public Use
  Company Number: US-HIKMA PHARMACEUTICALS USA INC.-US-H14001-19-04990

PATIENT
  Age: 55 Year
  Sex: Male
  Weight: 117 kg

DRUGS (14)
  1. KETAMINE [Suspect]
     Active Substance: KETAMINE
     Indication: HYPERAESTHESIA
     Route: 042
  2. HYDROMORPHONE [Suspect]
     Active Substance: HYDROMORPHONE
     Indication: ANALGESIC THERAPY
     Route: 042
  3. CLONIDINE. [Concomitant]
     Active Substance: CLONIDINE
     Indication: PRODUCT USED FOR UNKNOWN INDICATION
     Route: 065
  4. IBUPROFEN. [Concomitant]
     Active Substance: IBUPROFEN
     Indication: PRODUCT USED FOR UNKNOWN INDICATION
     Route: 065
  5. HYDROMORPHONE [Suspect]
     Active Substance: HYDROMORPHONE
     Indication: COMPLEX REGIONAL PAIN SYNDROME
     Route: 048
  6. KETAMINE [Suspect]
     Active Substance: KETAMINE
     Route: 042
  7. LORAZEPAM. [Concomitant]
     Active Substance: LORAZEPAM
     Indication: PSYCHOTIC SYMPTOM
     Route: 065
  8. ACETAMINOPHEN. [Concomitant]
     Active Substance: ACETAMINOPHEN
     Indication: PRODUCT USED FOR UNKNOWN INDICATION
     Route: 065
  9. GABAPENTIN. [Concomitant]
     Active Substance: GABAPENTIN
     Indication: PRODUCT USED FOR UNKNOWN INDICATION
     Route: 065
  10. METHADONE [Suspect]
     Active Substance: METHADONE HYDROCHLORIDE
     Indication: COMPLEX REGIONAL PAIN SYNDROME
     Route: 048
  11. PREGABALIN. [Concomitant]
     Active Substance: PREGABALIN
     Indication: PRODUCT USED FOR UNKNOWN INDICATION
     Route: 065
  12. OXYCODONE [Concomitant]
     Active Substance: OXYCODONE
     Indication: WITHDRAWAL SYNDROME
     Route: 065
  13. KETAMINE [Suspect]
     Active Substance: KETAMINE
     Dosage: FROM 35 MG/HR TO 50 MG/HR
     Route: 042
  14. KETAMINE [Suspect]
     Active Substance: KETAMINE
     Dosage: MAXIMUM RATE OF 90 MG/HR
     Route: 042

REACTIONS (9)
  - Hyperaesthesia [Recovering/Resolving]
  - Nausea [Recovered/Resolved]
  - Withdrawal syndrome [Recovered/Resolved]
  - Hyperhidrosis [Recovered/Resolved]
  - Hallucination, auditory [Recovered/Resolved]
  - Anxiety [Recovered/Resolved]
  - Vision blurred [Recovered/Resolved]
  - Hallucination, visual [Recovered/Resolved]
  - Vomiting [Recovered/Resolved]
